FAERS Safety Report 11470849 (Version 7)
Quarter: 2015Q4

REPORT INFORMATION
  Report Type: Spontaneous
  Country: US (occurrence: US)
  Receive Date: 20150908
  Receipt Date: 20151013
  Transmission Date: 20160304
  Serious: Yes (Hospitalization)
  Sender: FDA-Public Use
  Company Number: US-009507513-1509USA002967

PATIENT
  Age: 23 Year
  Sex: Female
  Weight: 95.69 kg

DRUGS (2)
  1. NEXPLANON [Suspect]
     Active Substance: ETONOGESTREL
     Indication: CONTRACEPTION
     Dosage: 1 IMPLANT/ 3 YEARS
     Route: 059
     Dates: start: 20141103
  2. NEXPLANON [Suspect]
     Active Substance: ETONOGESTREL
     Dosage: UNK
     Route: 059

REACTIONS (8)
  - Heart rate decreased [Unknown]
  - Presyncope [Unknown]
  - Vaginal haemorrhage [Unknown]
  - Coital bleeding [Unknown]
  - Abdominal pain [Unknown]
  - Dizziness [Unknown]
  - Device breakage [Recovered/Resolved]
  - Device breakage [Not Recovered/Not Resolved]

NARRATIVE: CASE EVENT DATE: 20150813
